FAERS Safety Report 24394820 (Version 1)
Quarter: 2024Q4

REPORT INFORMATION
  Report Type: Spontaneous
  Country: PL (occurrence: PL)
  Receive Date: 20241004
  Receipt Date: 20241004
  Transmission Date: 20250115
  Serious: Yes (Other)
  Sender: EXELIXIS
  Company Number: None

PATIENT
  Age: 59 Year
  Sex: Male

DRUGS (1)
  1. CABOMETYX [Suspect]
     Active Substance: CABOZANTINIB S-MALATE
     Indication: Product used for unknown indication
     Dosage: REDUCTION FROM 60MG TO 40MG AND THEN 20MG
     Route: 048

REACTIONS (3)
  - Burning sensation [Unknown]
  - Skin exfoliation [Unknown]
  - Hyperkeratosis [Unknown]
